FAERS Safety Report 21382240 (Version 1)
Quarter: 2022Q3

REPORT INFORMATION
  Report Type: Spontaneous
  Country: US (occurrence: None)
  Receive Date: 20220926
  Receipt Date: 20220926
  Transmission Date: 20221027
  Serious: Yes (Disabling, Other)
  Sender: FDA-Public Use
  Company Number: None

PATIENT
  Age: 46 Year
  Sex: Female
  Weight: 66.6 kg

DRUGS (14)
  1. MOUNJARO [Suspect]
     Active Substance: TIRZEPATIDE
     Indication: Weight decreased
     Dosage: OTHER QUANTITY : 1 INJECTION(S);?OTHER FREQUENCY : WEEKLY;?
     Route: 058
     Dates: start: 20220829, end: 20220926
  2. MOUNJARO [Suspect]
     Active Substance: TIRZEPATIDE
     Indication: Metabolic syndrome
  3. VALSARTAN [Concomitant]
     Active Substance: VALSARTAN
  4. SINGULAIR [Concomitant]
     Active Substance: MONTELUKAST SODIUM
  5. HYDROXYZINE [Concomitant]
     Active Substance: HYDROXYZINE HYDROCHLORIDE
  6. BENADRYL [Concomitant]
     Active Substance: DIPHENHYDRAMINE HYDROCHLORIDE
  7. ZYRTEC [Concomitant]
     Active Substance: CETIRIZINE HYDROCHLORIDE
  8. MIRENA [Concomitant]
     Active Substance: LEVONORGESTREL
  9. VITAMIN D [Concomitant]
     Active Substance: VITAMIN D NOS
  10. GABAPENTIN [Concomitant]
     Active Substance: GABAPENTIN
  11. XYZAL [Concomitant]
     Active Substance: LEVOCETIRIZINE DIHYDROCHLORIDE
  12. EMGALITY [Concomitant]
     Active Substance: GALCANEZUMAB-GNLM
  13. PEPCID [Concomitant]
     Active Substance: FAMOTIDINE
  14. MOTRIN [Concomitant]
     Active Substance: IBUPROFEN

REACTIONS (3)
  - Neuralgia [None]
  - Electric shock sensation [None]
  - Small fibre neuropathy [None]

NARRATIVE: CASE EVENT DATE: 20220925
